FAERS Safety Report 6425591-0 (Version None)
Quarter: 2009Q4

REPORT INFORMATION
  Report Type: 
  Country: None (occurrence: None)
  Receive Date: 20091103
  Receipt Date: 20091022
  Transmission Date: 20100525
  Serious: Yes (Other)
  Sender: FDA-Public Use
  Company Number: BR-PFIZER INC-2009287161

PATIENT
  Sex: Male
  Weight: 105 kg

DRUGS (2)
  1. DOSTINEX [Suspect]
     Dosage: UNK
     Route: 048
     Dates: start: 20070101
  2. BENZATHINE BENZYLPENICILLIN [Concomitant]

REACTIONS (7)
  - DYSPNOEA [None]
  - ERYTHEMA [None]
  - FEELING HOT [None]
  - HYPERSENSITIVITY [None]
  - OEDEMA PERIPHERAL [None]
  - RHEUMATIC FEVER [None]
  - SKIN DISORDER [None]
